FAERS Safety Report 18057571 (Version 3)
Quarter: 2020Q3

REPORT INFORMATION
  Report Type: Report from Study
  Country: NL (occurrence: NL)
  Receive Date: 20200722
  Receipt Date: 20200820
  Transmission Date: 20201103
  Serious: Yes (Hospitalization)
  Sender: FDA-Public Use
  Company Number: NL-BRISTOL-MYERS SQUIBB COMPANY-BMS-2020-058289

PATIENT
  Age: 60 Year
  Sex: Female

DRUGS (11)
  1. IPILIMUMAB [Suspect]
     Active Substance: IPILIMUMAB
     Indication: NON-SMALL CELL LUNG CANCER
     Dosage: CYCLE 1
     Route: 042
     Dates: start: 20200312, end: 20200312
  2. CARBOPLATIN. [Suspect]
     Active Substance: CARBOPLATIN
     Indication: NON-SMALL CELL LUNG CANCER
     Dosage: CYCLE 1
     Route: 042
     Dates: start: 20200312, end: 20200312
  3. CARBOPLATIN. [Suspect]
     Active Substance: CARBOPLATIN
     Dosage: CYCLE 2
     Route: 042
     Dates: start: 20200401, end: 20200401
  4. ETOPOSIDE. [Suspect]
     Active Substance: ETOPOSIDE
     Indication: NON-SMALL CELL LUNG CANCER
     Dosage: CYCLE 1
     Route: 042
     Dates: start: 20200312, end: 20200312
  5. ETOPOSIDE. [Suspect]
     Active Substance: ETOPOSIDE
     Dosage: CYCLE 2
     Route: 042
     Dates: start: 20200402, end: 20200402
  6. NIVOLUMAB [Suspect]
     Active Substance: NIVOLUMAB
     Dosage: CYCLE 2
     Route: 042
     Dates: start: 20200401, end: 20200401
  7. NIVOLUMAB [Suspect]
     Active Substance: NIVOLUMAB
     Indication: NON-SMALL CELL LUNG CANCER
     Dosage: CYCLE 1
     Route: 042
     Dates: start: 20200312, end: 20200312
  8. ETOPOSIDE. [Suspect]
     Active Substance: ETOPOSIDE
     Dosage: CYCLE 1
     Route: 042
     Dates: start: 20200313, end: 20200313
  9. ETOPOSIDE. [Suspect]
     Active Substance: ETOPOSIDE
     Indication: NON-SMALL CELL LUNG CANCER
     Dosage: CYCLE 1
     Route: 048
     Dates: start: 20200313, end: 20200313
  10. ETOPOSIDE. [Suspect]
     Active Substance: ETOPOSIDE
     Dosage: CYCLE 2
     Route: 042
     Dates: start: 20200401, end: 20200401
  11. ETOPOSIDE. [Suspect]
     Active Substance: ETOPOSIDE
     Dosage: CYCLE 2
     Route: 042
     Dates: start: 20200403, end: 20200403

REACTIONS (1)
  - Wound dehiscence [Unknown]

NARRATIVE: CASE EVENT DATE: 20200717
